FAERS Safety Report 9462676 (Version 2)
Quarter: 2013Q3

REPORT INFORMATION
  Report Type: Spontaneous
  Country: US (occurrence: None)
  Receive Date: 20130814
  Receipt Date: 20130828
  Transmission Date: 20140515
  Serious: Yes (Other)
  Sender: FDA-Public Use
  Company Number: AUR-APL-2013-06627

PATIENT
  Age: 26 Year
  Sex: Male

DRUGS (3)
  1. LEVETIRACETAM [Suspect]
     Indication: CONVULSION
     Dosage: 2000 MG (1000 MG 2 IN 1 D),ORAL
     Dates: start: 20121128
  2. KEPPRA (LEVETIRACETAM) [Concomitant]
  3. TOPIRAMATE (TOPIRAMATE) [Concomitant]

REACTIONS (3)
  - Convulsion [None]
  - Therapeutic response unexpected with drug substitution [None]
  - Product substitution issue [None]
